FAERS Safety Report 9242068 (Version 1)
Quarter: 2013Q2

REPORT INFORMATION
  Report Type: Spontaneous
  Country: US (occurrence: US)
  Receive Date: 20130419
  Receipt Date: 20130419
  Transmission Date: 20140414
  Serious: No
  Sender: FDA-Public Use
  Company Number: US-ASTRAZENECA-2011SE56616

PATIENT
  Age: 84 Year
  Sex: Female

DRUGS (4)
  1. ATACAND [Suspect]
     Route: 048
  2. BENICAR [Concomitant]
  3. WATER PILL [Concomitant]
  4. FELODIPINE [Concomitant]

REACTIONS (3)
  - Blood pressure increased [Unknown]
  - Adverse reaction [Unknown]
  - Drug dose omission [Unknown]
